FAERS Safety Report 17050085 (Version 2)
Quarter: 2019Q4

REPORT INFORMATION
  Report Type: Spontaneous
  Country: US (occurrence: US)
  Receive Date: 20191119
  Receipt Date: 20191230
  Transmission Date: 20200122
  Serious: Yes (Death)
  Sender: FDA-Public Use
  Company Number: US-PFIZER INC-2019368358

PATIENT
  Age: 80 Year
  Sex: Male
  Weight: 89.8 kg

DRUGS (2)
  1. VYNDAQEL [Suspect]
     Active Substance: TAFAMIDIS MEGLUMINE
     Indication: AMYLOIDOSIS
  2. VYNDAQEL [Suspect]
     Active Substance: TAFAMIDIS MEGLUMINE
     Indication: CARDIAC FAILURE CONGESTIVE
     Dosage: 20 MG, 4X/DAY (4 CAPSULES DAILY)
     Dates: start: 201909

REACTIONS (3)
  - Off label use [Unknown]
  - Product use in unapproved indication [Unknown]
  - Acute kidney injury [Fatal]

NARRATIVE: CASE EVENT DATE: 201909
